FAERS Safety Report 4415076-5 (Version None)
Quarter: 2004Q3

REPORT INFORMATION
  Report Type: 
  Country: None (occurrence: None)
  Receive Date: 20040804
  Receipt Date: 20040729
  Transmission Date: 20050211
  Serious: Yes (Hospitalization)
  Sender: FDA-Public Use
  Company Number: 200412397EU

PATIENT
  Age: 52 Year
  Sex: Female

DRUGS (2)
  1. ENOXAPARIN SODIUM [Suspect]
     Indication: PROPHYLAXIS
     Route: 058
     Dates: start: 20040106, end: 20040113
  2. VALIUM [Suspect]
     Route: 048
     Dates: start: 19940101

REACTIONS (1)
  - VERTIGO [None]
